FAERS Safety Report 25718345 (Version 1)
Quarter: 2025Q3

REPORT INFORMATION
  Report Type: Spontaneous
  Country: US (occurrence: US)
  Receive Date: 20250824
  Receipt Date: 20250824
  Transmission Date: 20251021
  Serious: No
  Sender: SANOFI AVENTIS
  Company Number: US-SA-2025SA248256

PATIENT
  Sex: Female
  Weight: 87.9 kg

DRUGS (16)
  1. CEREZYME [Suspect]
     Active Substance: IMIGLUCERASE
     Indication: Gaucher^s disease
     Dosage: 5600 IU, Q4W
     Route: 042
     Dates: start: 201104
  2. SODIUM CHLORIDE [Concomitant]
     Active Substance: SODIUM CHLORIDE
  3. EPINEPHRINE [Concomitant]
     Active Substance: EPINEPHRINE
  4. STERILE WATER [Concomitant]
     Active Substance: WATER
  5. OMEPRAZOLE [Concomitant]
     Active Substance: OMEPRAZOLE
  6. TYLENOL [Concomitant]
     Active Substance: ACETAMINOPHEN
  7. ACETAMINOPHEN\HYDROCODONE [Concomitant]
     Active Substance: ACETAMINOPHEN\HYDROCODONE
  8. ELIQUIS [Concomitant]
     Active Substance: APIXABAN
  9. FOLIC ACID [Concomitant]
     Active Substance: FOLIC ACID
  10. SODIUM CHLORIDE [Concomitant]
     Active Substance: SODIUM CHLORIDE
  11. ALLOPURINOL [Concomitant]
     Active Substance: ALLOPURINOL
  12. HYDROCHLOROTHIAZIDE\LOSARTAN [Concomitant]
     Active Substance: HYDROCHLOROTHIAZIDE\LOSARTAN
  13. METOPROLOL SUCCINATE [Concomitant]
     Active Substance: METOPROLOL SUCCINATE
  14. PREDNISONE [Concomitant]
     Active Substance: PREDNISONE
  15. DIPHENHYDRAMINE [Concomitant]
     Active Substance: DIPHENHYDRAMINE
  16. DIGOXIN [Concomitant]
     Active Substance: DIGOXIN

REACTIONS (4)
  - Illness [Unknown]
  - Dysphonia [Unknown]
  - Balance disorder [Unknown]
  - Stress [Unknown]
